FAERS Safety Report 10682019 (Version 1)
Quarter: 2014Q4

REPORT INFORMATION
  Report Type: Spontaneous
  Country: IN (occurrence: IN)
  Receive Date: 20141230
  Receipt Date: 20141230
  Transmission Date: 20150529
  Serious: Yes (Other)
  Sender: FDA-Public Use
  Company Number: PHHY2014IN169244

PATIENT
  Age: 25 Year
  Sex: Male

DRUGS (2)
  1. RISPERIDONE. [Suspect]
     Active Substance: RISPERIDONE
     Indication: PRODUCT USED FOR UNKNOWN INDICATION
     Dosage: 2 MG, QD
     Route: 048
  2. AMISULPRIDE [Suspect]
     Active Substance: AMISULPRIDE
     Indication: PSYCHIATRIC SYMPTOM
     Dosage: 100 MG, QD
     Route: 048

REACTIONS (4)
  - Dystonia [Recovering/Resolving]
  - Trismus [Unknown]
  - Joint dislocation [Recovering/Resolving]
  - Pain in jaw [Unknown]
